FAERS Safety Report 8400914-1 (Version None)
Quarter: 2012Q2

REPORT INFORMATION
  Report Type: 
  Country: None (occurrence: None)
  Receive Date: 20120601
  Receipt Date: 20120522
  Transmission Date: 20120825
  Serious: Yes (Other)
  Sender: FDA-Public Use
  Company Number: TR-AMGEN-TURSP2012033356

PATIENT
  Age: 40 Year
  Sex: Female

DRUGS (1)
  1. ENBREL [Suspect]
     Indication: ANKYLOSING SPONDYLITIS
     Dosage: 50 MG, WEEKLY
     Route: 058
     Dates: start: 20111130, end: 20120508

REACTIONS (6)
  - PULMONARY OEDEMA [None]
  - DYSPNOEA [None]
  - DEPRESSED MOOD [None]
  - STRESS [None]
  - AFFECTIVE DISORDER [None]
  - TACHYCARDIA [None]
